FAERS Safety Report 14982831 (Version 2)
Quarter: 2018Q2

REPORT INFORMATION
  Report Type: Spontaneous
  Country: US (occurrence: US)
  Receive Date: 20180607
  Receipt Date: 20180619
  Transmission Date: 20180711
  Serious: Yes (Life-Threatening, Hospitalization)
  Sender: FDA-Public Use
  Company Number: US-BAYER-2018-100824

PATIENT
  Sex: Female

DRUGS (1)
  1. MIRENA [Suspect]
     Active Substance: LEVONORGESTREL
     Indication: CONTRACEPTION
     Dosage: 20 MCG/24HR, CONT
     Route: 015
     Dates: start: 2014

REACTIONS (13)
  - Device breakage [None]
  - Toe amputation [None]
  - Gastrointestinal injury [None]
  - Multiple organ dysfunction syndrome [None]
  - Septic shock [None]
  - Post procedural haemorrhage [None]
  - Complication of device removal [None]
  - Device dislocation [None]
  - Abdominal pain upper [None]
  - Internal haemorrhage [None]
  - Genital haemorrhage [None]
  - Procedural pain [None]
  - Ovarian disorder [None]

NARRATIVE: CASE EVENT DATE: 2017
